FAERS Safety Report 20616338 (Version 1)
Quarter: 2022Q1

REPORT INFORMATION
  Report Type: Spontaneous
  Country: US (occurrence: None)
  Receive Date: 20220321
  Receipt Date: 20220321
  Transmission Date: 20220423
  Serious: Yes (Hospitalization)
  Sender: FDA-Public Use
  Company Number: None

PATIENT
  Age: 89 Year
  Sex: Male

DRUGS (1)
  1. WARFARIN SODIUM [Suspect]
     Active Substance: WARFARIN SODIUM
     Indication: Deep vein thrombosis
     Dates: start: 20211020, end: 20220119

REACTIONS (8)
  - Asthenia [None]
  - Deep vein thrombosis [None]
  - Weight decreased [None]
  - Blood pressure orthostatic [None]
  - Malnutrition [None]
  - Constipation [None]
  - Cognitive disorder [None]
  - Leukopenia [None]

NARRATIVE: CASE EVENT DATE: 20220303
